FAERS Safety Report 23643527 (Version 1)
Quarter: 2024Q1

REPORT INFORMATION
  Report Type: Spontaneous
  Country: US (occurrence: None)
  Receive Date: 20240316
  Receipt Date: 20240316
  Transmission Date: 20240410
  Serious: Yes (unspecified)
  Sender: FDA-Public Use
  Company Number: None

PATIENT
  Age: 66 Year
  Sex: Female

DRUGS (11)
  1. OZEMPIC [Suspect]
     Active Substance: SEMAGLUTIDE
     Indication: Hyperglycaemia
     Dosage: ONE SHOT PER WEEK SUBCUTANEOUS?
     Route: 058
     Dates: start: 20231224, end: 20240311
  2. OZEMPIC [Suspect]
     Active Substance: SEMAGLUTIDE
     Indication: Weight decreased
  3. CARVEDILOL [Concomitant]
     Active Substance: CARVEDILOL
  4. hydrochlorathyazide [Concomitant]
  5. METFORMIN [Concomitant]
     Active Substance: METFORMIN HYDROCHLORIDE
  6. POTASSIUM [Concomitant]
     Active Substance: POTASSIUM
  7. VITAMINS [Concomitant]
     Active Substance: VITAMINS
  8. VITAMIN B12 [Concomitant]
     Active Substance: CYANOCOBALAMIN
  9. VITAMIN D [Concomitant]
     Active Substance: VITAMIN D NOS
  10. ASPIRIN [Concomitant]
     Active Substance: ASPIRIN
  11. MAGNESIUM [Concomitant]
     Active Substance: MAGNESIUM

REACTIONS (11)
  - Phaeochromocytoma [None]
  - Hypertensive crisis [None]
  - Blood pressure fluctuation [None]
  - Flushing [None]
  - Headache [None]
  - Chest pain [None]
  - Vertigo [None]
  - Cardiac flutter [None]
  - Tachycardia [None]
  - Bradycardia [None]
  - Product label issue [None]

NARRATIVE: CASE EVENT DATE: 20240222
